FAERS Safety Report 8322918-X (Version None)
Quarter: 2012Q2

REPORT INFORMATION
  Report Type: 
  Country: None (occurrence: None)
  Receive Date: 20120430
  Receipt Date: 20120419
  Transmission Date: 20120825
  Serious: Yes (Other)
  Sender: FDA-Public Use
  Company Number: CHPA2012US009381

PATIENT
  Age: 61 Year
  Sex: Female

DRUGS (4)
  1. STOOL SOFTENER [Concomitant]
     Dosage: UNK
     Route: 048
  2. DRUG THERAPY NOS [Concomitant]
     Dosage: 1 UNK, UNK
     Route: 048
     Dates: start: 20110101
  3. DRUG THERAPY NOS [Concomitant]
     Indication: RENAL DISORDER
     Dosage: UNK, 3-4 TIMES A DAY
  4. BENEFIBER SUGAR FREE [Suspect]
     Dosage: 3 DF, TID
     Route: 048
     Dates: start: 20110101

REACTIONS (6)
  - LOCALISED INFECTION [None]
  - THERAPEUTIC RESPONSE UNEXPECTED [None]
  - SKIN ULCER [None]
  - SKIN FISSURES [None]
  - OFF LABEL USE [None]
  - DRY SKIN [None]
